FAERS Safety Report 7655626-9 (Version None)
Quarter: 2011Q3

REPORT INFORMATION
  Report Type: 
  Country: None (occurrence: None)
  Receive Date: 20110729
  Receipt Date: 20110718
  Transmission Date: 20111222
  Serious: Yes (Other)
  Sender: FDA-Public Use
  Company Number: VISP-N0-1107S-0270

PATIENT
  Age: 51 Year
  Sex: Male

DRUGS (9)
  1. REMIFENTANIL (ULTIVA) (REMIFEMTANIL HYDROCHLORIDE) [Concomitant]
  2. MIDAZOLAM HCL [Concomitant]
  3. VISIPAQUE [Suspect]
     Indication: INTRACRANIAL ANEURYSM
     Dosage: SINGLE DOSE, INTRA-ARTERIAL
     Route: 013
     Dates: start: 20110520, end: 20110520
  4. VISIPAQUE [Suspect]
     Indication: VERTEBRAL ARTERY STENOSIS
     Dosage: SINGLE DOSE, INTRA-ARTERIAL
     Route: 013
     Dates: start: 20110520, end: 20110520
  5. PROPOFOL ( DIPRIVAN) (PROPOFOL) [Concomitant]
  6. CISATRACURIUM BESILATE (NIMBEX) (CISATRACURIUM BESILATE) [Concomitant]
  7. ACETYLSALICYLATE LYSINE (KARDEGIC) (ACETYLSALICYLATE) [Concomitant]
  8. HEPARIN SODIUM [Concomitant]
  9. CLOPIDOGEL (PLAVIX) (CLOPIDOGEL) [Concomitant]

REACTIONS (5)
  - NEUROTOXICITY [None]
  - HALLUCINATION, VISUAL [None]
  - BLINDNESS CORTICAL [None]
  - COLOUR BLINDNESS ACQUIRED [None]
  - HEMIANOPIA HOMONYMOUS [None]
